FAERS Safety Report 9485836 (Version 1)
Quarter: 2013Q3

REPORT INFORMATION
  Report Type: Spontaneous
  Country: US (occurrence: None)
  Receive Date: 20130827
  Receipt Date: 20130827
  Transmission Date: 20140515
  Serious: Yes (Other)
  Sender: FDA-Public Use
  Company Number: None

PATIENT
  Age: 55 Year
  Sex: Male
  Weight: 95 kg

DRUGS (1)
  1. ZOLPIDEM [Suspect]
     Dosage: 10 MG  AT BEDTIME PO
     Route: 048
     Dates: start: 20120829, end: 20130206

REACTIONS (1)
  - Amnesia [None]
